FAERS Safety Report 25304417 (Version 1)
Quarter: 2025Q2

REPORT INFORMATION
  Report Type: Spontaneous
  Country: US (occurrence: None)
  Receive Date: 20250512
  Receipt Date: 20250512
  Transmission Date: 20250716
  Serious: Yes (Hospitalization)
  Sender: FDA-CTU
  Company Number: None

PATIENT
  Sex: Female

DRUGS (2)
  1. OPSUMIT [Suspect]
     Active Substance: MACITENTAN
     Indication: Pulmonary arterial hypertension
     Dosage: 10 MG DAILY ORAL?
     Route: 048
     Dates: start: 20250430
  2. REMODULIN [Suspect]
     Active Substance: TREPROSTINIL

REACTIONS (5)
  - Abdominal pain [None]
  - Dyspnoea [None]
  - Tremor [None]
  - Pain in extremity [None]
  - Therapy interrupted [None]
